FAERS Safety Report 5671432-9 (Version None)
Quarter: 2008Q1

REPORT INFORMATION
  Report Type: 
  Country: None (occurrence: None)
  Receive Date: 20080313
  Receipt Date: 20080208
  Transmission Date: 20080703
  Serious: Yes (Hospitalization, Other)
  Sender: FDA-Public Use
  Company Number: 2007AL003056

PATIENT
  Age: 14 Year
  Sex: Male

DRUGS (5)
  1. DICLOFENAC SODIUM [Suspect]
     Indication: JUVENILE ARTHRITIS
     Dosage: 75 MG; BID
  2. METHOTREXATE [Concomitant]
  3. PREDNISOLONE [Concomitant]
  4. ACICLOLVIR [Concomitant]
  5. PREDNISONE TAB [Concomitant]

REACTIONS (3)
  - DEHYDRATION [None]
  - HERPES ZOSTER [None]
  - RENAL FAILURE ACUTE [None]
